FAERS Safety Report 9432584 (Version 1)
Quarter: 2013Q3

REPORT INFORMATION
  Report Type: Spontaneous
  Country: CA (occurrence: CA)
  Receive Date: 20130731
  Receipt Date: 20130731
  Transmission Date: 20140515
  Serious: Yes (Death, Other)
  Sender: FDA-Public Use
  Company Number: CA-PURDUE-CAN-2013-0004317

PATIENT
  Age: 22 Year
  Sex: Female
  Weight: 35.37 kg

DRUGS (6)
  1. HYDROMORPHONE HCL [Suspect]
     Indication: PRODUCT USED FOR UNKNOWN INDICATION
     Dosage: UNK
     Dates: start: 2011
  2. OPIOIDS [Suspect]
     Indication: PRODUCT USED FOR UNKNOWN INDICATION
  3. CANNABIS [Suspect]
     Indication: PRODUCT USED FOR UNKNOWN INDICATION
     Dosage: UNK
     Dates: start: 2005
  4. METHAMPHETAMINE [Suspect]
     Indication: PRODUCT USED FOR UNKNOWN INDICATION
  5. COCAINE [Suspect]
     Indication: PRODUCT USED FOR UNKNOWN INDICATION
  6. AMPHETAMINE [Suspect]
     Indication: PRODUCT USED FOR UNKNOWN INDICATION

REACTIONS (13)
  - Overdose [Fatal]
  - Drug dependence [Unknown]
  - Substance abuse [Unknown]
  - Drug withdrawal syndrome [Unknown]
  - Convulsion [Unknown]
  - Cardiac failure [Unknown]
  - Weight decreased [Unknown]
  - Aggression [Unknown]
  - Conversion disorder [Unknown]
  - Decreased appetite [Unknown]
  - Tremor [Unknown]
  - Pain [Unknown]
  - Cold sweat [Unknown]
